FAERS Safety Report 12717274 (Version 1)
Quarter: 2016Q3

REPORT INFORMATION
  Report Type: Spontaneous
  Country: CH (occurrence: CH)
  Receive Date: 20160906
  Receipt Date: 20160906
  Transmission Date: 20161109
  Serious: Yes (Hospitalization)
  Sender: FDA-Public Use
  Company Number: CH-TEVA-688424ISR

PATIENT
  Age: 96 Year
  Sex: Female

DRUGS (5)
  1. CIPRALEX [Suspect]
     Active Substance: ESCITALOPRAM OXALATE
     Route: 065
     Dates: end: 20160731
  2. BELOC ZOK [Suspect]
     Active Substance: METOPROLOL SUCCINATE
     Route: 065
     Dates: end: 20160731
  3. AMIODARON-MEPHA [Suspect]
     Active Substance: AMIODARONE
     Route: 065
  4. TOREM [Suspect]
     Active Substance: TORSEMIDE
     Route: 065
     Dates: end: 20160731
  5. ASS CARDIO ACTAVIS [Suspect]
     Active Substance: ASPIRIN
     Route: 065
     Dates: end: 20160728

REACTIONS (1)
  - Fall [Not Recovered/Not Resolved]

NARRATIVE: CASE EVENT DATE: 20160728
